FAERS Safety Report 18251240 (Version 8)
Quarter: 2021Q2

REPORT INFORMATION
  Report Type: Report from Study
  Country: FR (occurrence: FR)
  Receive Date: 20200910
  Receipt Date: 20210503
  Transmission Date: 20210717
  Serious: Yes (Hospitalization, Other)
  Sender: FDA-Public Use
  Company Number: FR-BRISTOL-MYERS SQUIBB COMPANY-BMS-2020-022903

PATIENT
  Age: 49 Year
  Sex: Female

DRUGS (2)
  1. IPILIMUMAB [Suspect]
     Active Substance: IPILIMUMAB
     Indication: MALIGNANT MELANOMA
     Dosage: 68 MILLIGRAM, Q3WK
     Route: 065
     Dates: start: 20200227
  2. NIVOLUMAB [Suspect]
     Active Substance: NIVOLUMAB
     Indication: MALIGNANT MELANOMA
     Dosage: 205 MILLIGRAM, Q3WK
     Route: 065
     Dates: start: 20200227

REACTIONS (2)
  - Nausea [Recovered/Resolved]
  - Autoimmune disorder [Unknown]

NARRATIVE: CASE EVENT DATE: 20200308
